FAERS Safety Report 10806994 (Version 1)
Quarter: 2015Q1

REPORT INFORMATION
  Report Type: Report from Study
  Country: US (occurrence: US)
  Receive Date: 20150217
  Receipt Date: 20150217
  Transmission Date: 20150721
  Serious: No
  Sender: FDA-Public Use
  Company Number: US-ABBVIE-14K-163-1260604-00

PATIENT
  Age: 69 Year
  Sex: Female

DRUGS (23)
  1. ENALAPRIL [Concomitant]
     Active Substance: ENALAPRIL
     Indication: HYPERTENSION
  2. VITAMIN D [Concomitant]
     Active Substance: CHOLECALCIFEROL
     Indication: PRODUCT USED FOR UNKNOWN INDICATION
     Dosage: 1000
  3. FLUORIDE [Concomitant]
     Active Substance: SODIUM FLUORIDE
     Indication: TOOTH DISORDER
  4. FLORA [Concomitant]
     Indication: PRODUCT USED FOR UNKNOWN INDICATION
  5. PROBIOTICS NOS [Concomitant]
     Active Substance: PROBIOTICS NOS
     Indication: PRODUCT USED FOR UNKNOWN INDICATION
  6. REFRESH [Concomitant]
     Active Substance: UNSPECIFIED INGREDIENT
     Indication: DRY EYE
  7. CALCITRATE [Concomitant]
     Indication: CALCIUM DEFICIENCY
  8. CENTRUM SILVER [Concomitant]
     Active Substance: VITAMINS
     Indication: PRODUCT USED FOR UNKNOWN INDICATION
  9. CENTRUM PRO NUTRIENT OMEGA 3 [Concomitant]
     Indication: CARDIAC DISORDER
  10. CENTRUM PRO NUTRIENT OMEGA 3 [Concomitant]
     Indication: DEMENTIA
  11. HUMIRA [Suspect]
     Active Substance: ADALIMUMAB
     Indication: CROHN^S DISEASE
     Dates: start: 20140610, end: 20140610
  12. AMLODIPINE [Concomitant]
     Active Substance: AMLODIPINE BESYLATE
     Indication: HYPERTENSION
  13. UNKNOWN MEDICATION [Concomitant]
     Active Substance: UNSPECIFIED INGREDIENT
     Indication: PROPHYLAXIS
  14. ZYRTEC [Concomitant]
     Active Substance: CETIRIZINE HYDROCHLORIDE
     Indication: SINUS DISORDER
     Dosage: HALF TABLET IN THE MORNING AND HALF TABLET BEFORE BED
  15. LEVOTHYROXINE [Concomitant]
     Active Substance: LEVOTHYROXINE
     Dates: start: 20140712
  16. CENTRUM PRO NUTRIENT OMEGA 3 [Concomitant]
     Indication: EYE DISORDER
  17. FIBER [Concomitant]
     Active Substance: PSYLLIUM HUSK
     Indication: PRODUCT USED FOR UNKNOWN INDICATION
  18. FISH OIL OMEGA 3 [Concomitant]
     Indication: PRODUCT USED FOR UNKNOWN INDICATION
     Dosage: 1000MG/300MG
  19. HUMIRA [Suspect]
     Active Substance: ADALIMUMAB
     Dates: start: 20140624, end: 20140624
  20. ULTIMA [Concomitant]
     Indication: PRODUCT USED FOR UNKNOWN INDICATION
  21. REFRESH [Concomitant]
     Active Substance: UNSPECIFIED INGREDIENT
     Indication: DRY EYE
     Dosage: EYE DROPS
  22. HUMIRA [Suspect]
     Active Substance: ADALIMUMAB
     Dates: start: 20140708
  23. LEVOTHYROXINE [Concomitant]
     Active Substance: LEVOTHYROXINE
     Indication: HYPOTHYROIDISM

REACTIONS (3)
  - Rhinorrhoea [Recovered/Resolved]
  - Defaecation urgency [Recovered/Resolved]
  - Urine odour abnormal [Recovered/Resolved]

NARRATIVE: CASE EVENT DATE: 201406
